FAERS Safety Report 9613279 (Version 2)
Quarter: 2013Q4

REPORT INFORMATION
  Report Type: Spontaneous
  Country: DE (occurrence: None)
  Receive Date: 20130919
  Receipt Date: 20131010
  Transmission Date: 20140711
  Serious: Yes (Death)
  Sender: FDA-Public Use
  Company Number: 2013037886

PATIENT
  Age: 76 Year
  Sex: Female

DRUGS (3)
  1. PRIVIGEN (IMMUNE GLOBULIN INTRAVENOUS (HUMAN) 10% LIQUID) [Suspect]
     Dosage: 10G 1X/MONTH, INFUSION RATE:  MIN 50, MAX 75
     Route: 041
     Dates: start: 20130110, end: 20130110
  2. SELEN (SELENIUM) [Concomitant]
  3. FOLIC ACID (FOLIC ACID) [Concomitant]

REACTIONS (2)
  - Pneumonia [None]
  - Neutropenia [None]
